FAERS Safety Report 16723370 (Version 4)
Quarter: 2022Q1

REPORT INFORMATION
  Report Type: Spontaneous
  Country: GB (occurrence: GB)
  Receive Date: 20190821
  Receipt Date: 20220307
  Transmission Date: 20220423
  Serious: Yes (Death, Hospitalization, Other)
  Sender: FDA-Public Use
  Company Number: GB-AUROBINDO-AUR-APL-2019-054301

PATIENT
  Age: 55 Year
  Sex: Male

DRUGS (9)
  1. RISPERIDONE [Suspect]
     Active Substance: RISPERIDONE
     Indication: Seizure
     Dosage: 12 MILLIGRAM, ONCE A DAY
     Route: 065
     Dates: start: 2006, end: 201908
  2. RISPERIDONE [Suspect]
     Active Substance: RISPERIDONE
     Dosage: 1500 MICROGRAM
     Route: 065
     Dates: start: 2019
  3. RISPERDAL [Suspect]
     Active Substance: RISPERIDONE
     Indication: Seizure
     Dosage: 4 MILLIGRAM, ONCE A DAY
     Route: 065
     Dates: start: 2004, end: 2019
  4. RISPERDAL [Suspect]
     Active Substance: RISPERIDONE
     Dosage: 12 MILLIGRAM, ONCE A DAY
     Route: 065
     Dates: start: 2006, end: 2019
  5. RISPERDAL [Suspect]
     Active Substance: RISPERIDONE
     Dosage: 3 MILLIGRAM
     Route: 048
     Dates: start: 2004
  6. ZARONTIN [Concomitant]
     Active Substance: ETHOSUXIMIDE
     Indication: Blood pressure measurement
     Dosage: 260 MILLIGRAM, ONCE A DAY
     Route: 065
  7. ZARONTIN [Concomitant]
     Active Substance: ETHOSUXIMIDE
     Dosage: 780 MILLIGRAM, ONCE A DAY
     Route: 065
  8. RAMIPRIL [Concomitant]
     Active Substance: RAMIPRIL
     Indication: Hypertension
     Dosage: UNK
     Route: 065
  9. AMLODIPINE [Concomitant]
     Active Substance: AMLODIPINE BESYLATE
     Indication: Hypertension
     Dosage: UNK
     Route: 065

REACTIONS (30)
  - Colon cancer [Fatal]
  - Gastric cancer [Fatal]
  - Seizure [Unknown]
  - Vomiting [Unknown]
  - Epilepsy [Unknown]
  - Lung neoplasm malignant [Unknown]
  - Gynaecomastia [Unknown]
  - Hyperhidrosis [Unknown]
  - Pollakiuria [Unknown]
  - Feeling hot [Unknown]
  - Somnolence [Unknown]
  - Dyskinesia [Unknown]
  - Abnormal weight gain [Unknown]
  - Rash pruritic [Not Recovered/Not Resolved]
  - Cough [Unknown]
  - Dyspnoea [Unknown]
  - Hyperglycaemia [Unknown]
  - Hypotension [Unknown]
  - Vision blurred [Unknown]
  - Nausea [Unknown]
  - Breast enlargement [Unknown]
  - Increased appetite [Unknown]
  - Dizziness [Unknown]
  - Urinary tract infection [Unknown]
  - Disturbance in attention [Unknown]
  - Sleep apnoea syndrome [Unknown]
  - Off label use [Unknown]
  - Product use in unapproved indication [Unknown]
  - Insomnia [Unknown]
  - Blood glucose increased [Unknown]

NARRATIVE: CASE EVENT DATE: 20040101
